FAERS Safety Report 8050030-6 (Version None)
Quarter: 2012Q1

REPORT INFORMATION
  Report Type: 
  Country: None (occurrence: None)
  Receive Date: 20120117
  Receipt Date: 20120111
  Transmission Date: 20120608
  Serious: Yes (Life-Threatening, Hospitalization, Other)
  Sender: FDA-Public Use
  Company Number: GR-JNJFOC-20110707445

PATIENT
  Age: 45 Year
  Sex: Male
  Weight: 74 kg

DRUGS (1)
  1. STELARA [Suspect]
     Indication: PSORIASIS
     Route: 058
     Dates: start: 20100901

REACTIONS (4)
  - STREPTOCOCCUS TEST POSITIVE [None]
  - MULTI-ORGAN FAILURE [None]
  - GASTROENTERITIS SALMONELLA [None]
  - SEPSIS [None]
